FAERS Safety Report 21720589 (Version 1)
Quarter: 2022Q4

REPORT INFORMATION
  Report Type: Report from Study
  Country: BR (occurrence: BR)
  Receive Date: 20221213
  Receipt Date: 20221213
  Transmission Date: 20230112
  Serious: Yes (Hospitalization)
  Sender: FDA-Public Use
  Company Number: BR-002147023-NVSC2022BR286729

PATIENT
  Age: 82 Year
  Sex: Male

DRUGS (2)
  1. DIOVAN [Suspect]
     Active Substance: VALSARTAN
     Indication: Product used for unknown indication
     Dosage: 1 DOSAGE FORM, QD (STARTED 2 YEARS AGO)
     Route: 065
  2. DIOVAN [Suspect]
     Active Substance: VALSARTAN
     Dosage: 4 DOSAGE FORM, QD (2 IN THE MORNING AND 2 AT NIGHT)
     Route: 065

REACTIONS (4)
  - Hypertensive crisis [Unknown]
  - Hypertension [Unknown]
  - Bradyarrhythmia [Unknown]
  - Intentional product use issue [Unknown]

NARRATIVE: CASE EVENT DATE: 20221129
